FAERS Safety Report 4791742-7 (Version None)
Quarter: 2005Q4

REPORT INFORMATION
  Report Type: 
  Country: None (occurrence: None)
  Receive Date: 20051005
  Receipt Date: 20050922
  Transmission Date: 20060501
  Serious: Yes (Hospitalization, Other)
  Sender: FDA-Public Use
  Company Number: 200513851BCC

PATIENT
  Age: 65 Year
  Sex: Male
  Weight: 78.9259 kg

DRUGS (3)
  1. REGIMEN BAYER 81MG (ACETYLSALICYLIC ACID) [Suspect]
     Indication: MYOCARDIAL INFARCTION
     Dosage: 81 MG, QD, ORAL
     Route: 048
     Dates: start: 20040101, end: 20050801
  2. REGIMEN BAYER 81MG (ACETYLSALICYLIC ACID) [Suspect]
     Indication: PROPHYLAXIS
     Dosage: 81 MG, QD, ORAL
     Route: 048
     Dates: start: 20040101, end: 20050801
  3. PROTONIX [Concomitant]

REACTIONS (4)
  - COLON CANCER [None]
  - DIZZINESS [None]
  - GASTRIC HAEMORRHAGE [None]
  - HAEMATOCRIT DECREASED [None]
